FAERS Safety Report 9560640 (Version 1)
Quarter: 2013Q3

REPORT INFORMATION
  Report Type: Spontaneous
  Country: US (occurrence: US)
  Receive Date: 20130927
  Receipt Date: 20130927
  Transmission Date: 20140515
  Serious: No
  Sender: FDA-Public Use
  Company Number: US-BIOGENIDEC-2013BI052817

PATIENT
  Age: 41 Year
  Sex: Female
  Weight: 88 kg

DRUGS (6)
  1. TECFIDERA [Suspect]
     Indication: MULTIPLE SCLEROSIS
     Dates: start: 20130606
  2. WELLBUTRIN [Concomitant]
  3. NALTREXONE [Concomitant]
  4. FOLIC ACID [Concomitant]
  5. BACLOFEN [Concomitant]
  6. CRANBERRY [Concomitant]

REACTIONS (4)
  - Rash [Not Recovered/Not Resolved]
  - Flushing [Not Recovered/Not Resolved]
  - Erythema [Unknown]
  - Pruritus [Unknown]
